FAERS Safety Report 4459169-5 (Version None)
Quarter: 2004Q3

REPORT INFORMATION
  Report Type: 
  Country: None (occurrence: None)
  Receive Date: 20040920
  Receipt Date: 20040920
  Transmission Date: 20050211
  Serious: Yes (Life-Threatening, Disabling, Other)
  Sender: FDA-Public Use
  Company Number: None

PATIENT
  Age: 14 Year
  Sex: Male
  Weight: 54.4316 kg

DRUGS (1)
  1. ACCUTANE [Suspect]
     Indication: ACNE
     Dosage: 1 DAILY ORAL
     Route: 048
     Dates: start: 19960301, end: 19960901

REACTIONS (13)
  - ALOPECIA [None]
  - ANXIETY [None]
  - BLOOD GLUCOSE ABNORMAL [None]
  - BONE DISORDER [None]
  - CONTACT LENS COMPLICATION [None]
  - DEPRESSION [None]
  - DYSURIA [None]
  - HAIR COLOUR CHANGES [None]
  - MENTAL DISORDER [None]
  - NERVOUS SYSTEM DISORDER [None]
  - PERSONALITY CHANGE [None]
  - PREMATURE AGEING [None]
  - SUICIDAL IDEATION [None]
